FAERS Safety Report 25184947 (Version 2)
Quarter: 2025Q3

REPORT INFORMATION
  Report Type: Report from Study
  Country: KR (occurrence: KR)
  Receive Date: 20250410
  Receipt Date: 20250922
  Transmission Date: 20251020
  Serious: Yes (Other)
  Sender: TAKEDA
  Company Number: KR-TAKEDA-2025TUS035000

PATIENT
  Age: 34 Year
  Sex: Male
  Weight: 72 kg

DRUGS (9)
  1. VEDOLIZUMAB [Suspect]
     Active Substance: VEDOLIZUMAB
     Indication: Crohn^s disease
     Dates: start: 20210329, end: 20211025
  2. TRAMADOL HYDROCHLORIDE [Concomitant]
     Active Substance: TRAMADOL HYDROCHLORIDE
     Indication: Pain
     Dosage: UNK UNK, QD
     Dates: start: 20210406, end: 20210406
  3. Dong a gaster [Concomitant]
     Indication: Gastritis prophylaxis
     Dosage: UNK UNK, QD
     Dates: start: 20210406, end: 20210406
  4. Bioflor [Concomitant]
     Indication: Abdominal discomfort
     Dosage: UNK UNK, TID
     Dates: start: 20210416, end: 20210429
  5. NEXIUM [Concomitant]
     Active Substance: ESOMEPRAZOLE MAGNESIUM
     Indication: Gastritis prophylaxis
     Dosage: 40 MILLIGRAM, QD
     Dates: start: 20210416, end: 20210429
  6. Ketorac [Concomitant]
     Indication: Abdominal pain
     Dosage: UNK UNK, QD
     Dates: start: 20210717, end: 20210717
  7. Ketorac [Concomitant]
     Dosage: UNK UNK, QD
     Dates: start: 20210829, end: 20210829
  8. AZATHIOPRINE [Concomitant]
     Active Substance: AZATHIOPRINE
     Indication: Crohn^s disease
     Dosage: 50 MILLIGRAM, QD
     Dates: start: 20200529
  9. Solondo [Concomitant]
     Indication: Crohn^s disease
     Dosage: 20 MILLIGRAM, BID
     Dates: start: 20200530

REACTIONS (1)
  - Haematochezia [Recovered/Resolved]

NARRATIVE: CASE EVENT DATE: 20210406
